FAERS Safety Report 6362314-8 (Version None)
Quarter: 2009Q3

REPORT INFORMATION
  Report Type: 
  Country: None (occurrence: None)
  Receive Date: 20090918
  Receipt Date: 20090826
  Transmission Date: 20100115
  Serious: No
  Sender: FDA-Public Use
  Company Number: US-ABBOTT-09P-163-0593989-00

PATIENT
  Sex: Female
  Weight: 65.376 kg

DRUGS (8)
  1. HUMIRA [Suspect]
     Indication: RHEUMATOID ARTHRITIS
     Route: 058
     Dates: start: 20090707
  2. SYNTHROID [Concomitant]
     Indication: HYPOTHYROIDISM
     Route: 048
  3. PREDNISONE [Concomitant]
     Indication: RHEUMATOID ARTHRITIS
     Route: 048
  4. CYMBALTA [Concomitant]
     Indication: DEPRESSION
     Route: 048
  5. CYMBALTA [Concomitant]
     Indication: INSOMNIA
  6. KLONOPIN [Concomitant]
     Indication: DYSTONIA
     Route: 048
  7. VITAMIN D3 [Concomitant]
     Indication: MEDICAL DIET
     Route: 048
  8. CALCIUM [Concomitant]
     Indication: MEDICAL DIET
     Route: 048

REACTIONS (1)
  - DRUG DOSE OMISSION [None]
